FAERS Safety Report 24798846 (Version 2)
Quarter: 2025Q1

REPORT INFORMATION
  Report Type: Spontaneous
  Country: US (occurrence: US)
  Receive Date: 20250102
  Receipt Date: 20250115
  Transmission Date: 20250409
  Serious: No
  Sender: SANOFI AVENTIS
  Company Number: US-SA-2024SA385246

PATIENT
  Sex: Male
  Weight: 100.68 kg

DRUGS (12)
  1. DUPIXENT [Suspect]
     Active Substance: DUPILUMAB
     Indication: Dermatitis atopic
     Dosage: 300 MG, QOW
     Route: 058
  2. MUPIROCIN [Concomitant]
     Active Substance: MUPIROCIN
  3. DESONIDE [Concomitant]
     Active Substance: DESONIDE
  4. PENCICLOVIR [Concomitant]
     Active Substance: PENCICLOVIR
  5. AZITHROMYCIN [Concomitant]
     Active Substance: AZITHROMYCIN
  6. BENZONATATE [Concomitant]
     Active Substance: BENZONATATE
  7. BACITRACIN;NEOMYCIN [Concomitant]
  8. PREDNISONE [Concomitant]
     Active Substance: PREDNISONE
  9. HYDROCORTISONE [Concomitant]
     Active Substance: HYDROCORTISONE
  10. AZELASTINE [Concomitant]
     Active Substance: AZELASTINE
  11. LOSARTAN POTASSIUM [Concomitant]
     Active Substance: LOSARTAN POTASSIUM
  12. ROSUVASTATIN CALCIUM [Concomitant]
     Active Substance: ROSUVASTATIN CALCIUM

REACTIONS (2)
  - Skin burning sensation [Unknown]
  - Visual impairment [Unknown]
